FAERS Safety Report 5892391-X (Version None)
Quarter: 2008Q3

REPORT INFORMATION
  Report Type: 
  Country: None (occurrence: None)
  Receive Date: 20080919
  Receipt Date: 20080919
  Transmission Date: 20090109
  Serious: Yes (Other)
  Sender: FDA-Public Use
  Company Number: None

PATIENT
  Age: 55 Year
  Sex: Female
  Weight: 72.5755 kg

DRUGS (2)
  1. LANTUS [Suspect]
     Indication: DIABETES MELLITUS
     Dosage: 50 UNITS FIRST TIME AT NIGHT SQ 10 UNITS THE SECOND TIME AT NIGHT SQ
     Route: 058
  2. LANTUS [Suspect]
     Indication: DIABETES MELLITUS
     Dosage: 50 UNITS FIRST TIME AT NIGHT SQ 10 UNITS THE SECOND TIME AT NIGHT SQ
     Route: 058

REACTIONS (2)
  - DYSPNOEA [None]
  - PRURITUS [None]
